FAERS Safety Report 11475684 (Version 1)
Quarter: 2015Q3

REPORT INFORMATION
  Report Type: Spontaneous
  Country: US (occurrence: US)
  Receive Date: 20150909
  Receipt Date: 20150909
  Transmission Date: 20151125
  Serious: Yes (Other)
  Sender: FDA-Public Use
  Company Number: US-ROCHE-ITM201504IM013873

PATIENT
  Age: 77 Year
  Sex: Male
  Weight: 83.54 kg

DRUGS (5)
  1. ESBRIET [Suspect]
     Active Substance: PIRFENIDONE
     Dosage: 2 CAPSULES THRICE DAILY
     Route: 048
  2. ESBRIET [Suspect]
     Active Substance: PIRFENIDONE
     Dosage: 3 CAPSULES THRICE DAILY
     Route: 048
     Dates: start: 20150414
  3. ESBRIET [Suspect]
     Active Substance: PIRFENIDONE
     Dosage: 2 CAPSULES THRICE DAILY
     Route: 048
     Dates: start: 20150407
  4. ESBRIET [Suspect]
     Active Substance: PIRFENIDONE
     Dosage: 3 CAPSULES THRICE DAILY
     Route: 048
     Dates: start: 20150427
  5. ESBRIET [Suspect]
     Active Substance: PIRFENIDONE
     Indication: IDIOPATHIC PULMONARY FIBROSIS
     Dosage: 1 CAPSULE THRICE DAILY
     Route: 048
     Dates: start: 20150331

REACTIONS (11)
  - Dyspnoea [Unknown]
  - Dizziness [Unknown]
  - Abdominal discomfort [Unknown]
  - Weight decreased [Unknown]
  - Decreased appetite [Unknown]
  - Oxygen saturation decreased [Unknown]
  - Nausea [Unknown]
  - Flatulence [Unknown]
  - Lethargy [Unknown]
  - Dyspepsia [Not Recovered/Not Resolved]
  - Eructation [Unknown]

NARRATIVE: CASE EVENT DATE: 20150407
